FAERS Safety Report 13389256 (Version 4)
Quarter: 2017Q2

REPORT INFORMATION
  Report Type: Spontaneous
  Country: US (occurrence: US)
  Receive Date: 20170330
  Receipt Date: 20170531
  Transmission Date: 20170830
  Serious: Yes (Hospitalization, Other)
  Sender: FDA-Public Use
  Company Number: US-BAUSCH-BL-2017-007964

PATIENT
  Age: 86 Year
  Sex: Female

DRUGS (4)
  1. DILTIAZEM HCL ER CAPSULES [Suspect]
     Active Substance: DILTIAZEM HYDROCHLORIDE
     Indication: PRODUCT USED FOR UNKNOWN INDICATION
     Route: 065
     Dates: start: 20170315
  2. DILTIAZEM CD [Suspect]
     Active Substance: DILTIAZEM
     Indication: CARDIAC DISORDER
     Route: 048
  3. MAXALT [Suspect]
     Active Substance: RIZATRIPTAN BENZOATE
     Indication: MIGRAINE
     Route: 065
  4. CARTIA XT [Suspect]
     Active Substance: DILTIAZEM HYDROCHLORIDE
     Indication: PRODUCT USED FOR UNKNOWN INDICATION
     Route: 065
     Dates: start: 201609, end: 20170316

REACTIONS (15)
  - Myocardial ischaemia [Recovered/Resolved]
  - Gallbladder disorder [Recovering/Resolving]
  - Product odour abnormal [Unknown]
  - Eructation [Recovered/Resolved]
  - Drug ineffective [Unknown]
  - Hypertensive crisis [Recovered/Resolved]
  - Photophobia [Recovering/Resolving]
  - Photosensitivity reaction [Recovering/Resolving]
  - Headache [Recovered/Resolved]
  - Sinus disorder [Recovering/Resolving]
  - Electrocardiogram abnormal [Recovering/Resolving]
  - Regurgitation [Recovering/Resolving]
  - Troponin increased [Recovering/Resolving]
  - Nausea [Recovered/Resolved]
  - Weight decreased [Unknown]

NARRATIVE: CASE EVENT DATE: 201703
